FAERS Safety Report 5532853-8 (Version None)
Quarter: 2007Q4

REPORT INFORMATION
  Report Type: 
  Country: None (occurrence: None)
  Receive Date: 20071130
  Receipt Date: 20071130
  Transmission Date: 20080405
  Serious: Yes (Other)
  Sender: FDA-Public Use
  Company Number: None

PATIENT
  Age: 20 Year
  Sex: Male
  Weight: 70.3075 kg

DRUGS (2)
  1. KEFLEX [Suspect]
     Indication: CELLULITIS
     Dates: start: 20071118, end: 20071124
  2. BACTRIM [Suspect]
     Dates: start: 20071118, end: 20071124

REACTIONS (3)
  - PRURITUS [None]
  - RASH GENERALISED [None]
  - URTICARIA [None]
